FAERS Safety Report 22190174 (Version 2)
Quarter: 2025Q1

REPORT INFORMATION
  Report Type: Report from Study
  Country: US (occurrence: US)
  Receive Date: 20230410
  Receipt Date: 20250326
  Transmission Date: 20250409
  Serious: Yes (Hospitalization, Other)
  Sender: AVEO PHARMACEUTICALS
  Company Number: US-AVEO ONCOLOGY-2023-AVEO-US000020

PATIENT
  Age: 68 Year

DRUGS (7)
  1. TIVOZANIB [Suspect]
     Active Substance: TIVOZANIB
     Indication: Renal cell carcinoma
     Dosage: 1.34 MG, DAILY FOR 21 DAYS WITH 7 DAYS OFF (28-DAY CYCLE)
  2. DEXAMETHASONE [Concomitant]
     Active Substance: DEXAMETHASONE
  3. MYRBETRIQ [Concomitant]
     Active Substance: MIRABEGRON
  4. OXYCODONE [Concomitant]
     Active Substance: OXYCODONE
  5. PROBIOTICS NOS [Concomitant]
     Active Substance: PROBIOTICS NOS
  6. SENNA [Concomitant]
     Active Substance: SENNOSIDES
  7. VALSARTAN [Concomitant]
     Active Substance: VALSARTAN

REACTIONS (1)
  - Cardiac failure congestive [Not Recovered/Not Resolved]
